FAERS Safety Report 16646945 (Version 1)
Quarter: 2019Q3

REPORT INFORMATION
  Report Type: Spontaneous
  Country: US (occurrence: US)
  Receive Date: 20190617
  Receipt Date: 20190617
  Transmission Date: 20191004
  Serious: No
  Sender: FDA-Public Use
  Company Number: None

PATIENT

DRUGS (3)
  1. LEVOTHYROXINE SODIUM LEVOTHYROXINE [Suspect]
     Active Substance: LEVOTHYROXINE SODIUM
  2. ATENOLOL TABLETS ATENOLOL [Suspect]
     Active Substance: ATENOLOL
     Route: 011
  3. HYDROCHLOROTHIAZIDE HYDROCHLOROTHIAZIDE [Suspect]
     Active Substance: HYDROCHLOROTHIAZIDE
     Route: 048

REACTIONS (2)
  - Wrong patient received product [None]
  - Drug dispensed to wrong patient [None]
